FAERS Safety Report 5942060-2 (Version None)
Quarter: 2008Q4

REPORT INFORMATION
  Report Type: 
  Country: None (occurrence: None)
  Receive Date: 20081105
  Receipt Date: 20081103
  Transmission Date: 20090506
  Serious: Yes (Other)
  Sender: FDA-Public Use
  Company Number: A0754610A

PATIENT
  Age: 6 Year
  Sex: Male

DRUGS (3)
  1. FLOVENT [Suspect]
     Indication: ASTHMA
     Dosage: 2PUFF AS REQUIRED
     Route: 055
     Dates: start: 20071001
  2. ALBUTEROL [Concomitant]
  3. OXYTOCIN [Concomitant]
     Route: 045

REACTIONS (5)
  - ABNORMAL BEHAVIOUR [None]
  - AGGRESSION [None]
  - HYPERSENSITIVITY [None]
  - NEGATIVISM [None]
  - PRODUCT QUALITY ISSUE [None]
